FAERS Safety Report 8349045-X (Version None)
Quarter: 2012Q2

REPORT INFORMATION
  Report Type: 
  Country: None (occurrence: None)
  Receive Date: 20120508
  Receipt Date: 20120425
  Transmission Date: 20120825
  Serious: Yes (Other)
  Sender: FDA-Public Use
  Company Number: 2012MA005494

PATIENT
  Sex: Female

DRUGS (2)
  1. CORTISONE ACETATE [Concomitant]
  2. SODIUM FLUORIDE TABLETS 1.0 MG (ATLLC) (SODIUM FLUORIDE) [Suspect]
     Indication: DENTAL CARIES
     Dosage: PO
     Route: 048
     Dates: start: 20120424

REACTIONS (4)
  - ATRIAL FIBRILLATION [None]
  - DOCUMENTED HYPERSENSITIVITY TO ADMINISTERED DRUG [None]
  - PHARYNGEAL OEDEMA [None]
  - OEDEMA MOUTH [None]
